FAERS Safety Report 7208300-7 (Version None)
Quarter: 2011Q1

REPORT INFORMATION
  Report Type: 
  Country: None (occurrence: None)
  Receive Date: 20110104
  Receipt Date: 20101228
  Transmission Date: 20110831
  Serious: Yes (Other)
  Sender: FDA-Public Use
  Company Number: US-TEVA-261502USA

PATIENT
  Sex: Female
  Weight: 59.02 kg

DRUGS (4)
  1. COPAXONE [Suspect]
     Indication: MULTIPLE SCLEROSIS
     Route: 058
     Dates: start: 20101014
  2. MULTIVITAMIN [Concomitant]
  3. LAMOTRIGINE [Concomitant]
  4. ZONISAMIDE [Concomitant]

REACTIONS (1)
  - CONVULSION [None]
